FAERS Safety Report 21956927 (Version 1)
Quarter: 2023Q1

REPORT INFORMATION
  Report Type: Spontaneous
  Country: US (occurrence: US)
  Receive Date: 20230206
  Receipt Date: 20230206
  Transmission Date: 20230418
  Serious: Yes (Congenital Anomaly)
  Sender: FDA-Public Use
  Company Number: US-002147023-NVSC2023US022401

PATIENT
  Sex: Female
  Weight: 58.97 kg

DRUGS (1)
  1. RECLAST [Suspect]
     Active Substance: ZOLEDRONIC ACID
     Indication: Osteoporosis
     Dosage: UNK
     Route: 042
     Dates: start: 20230117, end: 20230117

REACTIONS (2)
  - Joint swelling [Unknown]
  - Arthralgia [Unknown]
